FAERS Safety Report 16821418 (Version 1)
Quarter: 2019Q3

REPORT INFORMATION
  Report Type: Spontaneous
  Country: US (occurrence: US)
  Receive Date: 20190918
  Receipt Date: 20190918
  Transmission Date: 20191005
  Serious: No
  Sender: FDA-Public Use
  Company Number: US-MYLANLABS-2019M1082958

PATIENT
  Sex: Female

DRUGS (1)
  1. ESTRADIOL TRANSDERMAL SYSTEM [Suspect]
     Active Substance: ESTRADIOL
     Indication: PRODUCT USED FOR UNKNOWN INDICATION
     Dosage: 0.025 MILLIGRAM, Q2W
     Route: 062

REACTIONS (4)
  - Mood swings [Recovered/Resolved]
  - Overdose [Recovered/Resolved]
  - Therapeutic product effect increased [Recovered/Resolved]
  - Product physical issue [Unknown]
